FAERS Safety Report 6143883-X (Version None)
Quarter: 2009Q2

REPORT INFORMATION
  Report Type: 
  Country: None (occurrence: None)
  Receive Date: 20090405
  Receipt Date: 20090327
  Transmission Date: 20091009
  Serious: No
  Sender: FDA-Public Use
  Company Number: US-B.I. PHARMACEUTICALS,INC./RIDGEFIELD-2009-BP-03820BP

PATIENT
  Sex: Male

DRUGS (5)
  1. FLOMAX [Suspect]
     Indication: BENIGN PROSTATIC HYPERPLASIA
     Dosage: .8MG
     Route: 048
     Dates: start: 20070101
  2. SIMVASTATIN [Concomitant]
     Indication: BLOOD CHOLESTEROL INCREASED
  3. METOPROLOL [Concomitant]
     Indication: HYPERTENSION
  4. PLAVIX [Concomitant]
     Indication: CEREBROVASCULAR ACCIDENT PROPHYLAXIS
  5. DIOVAN [Concomitant]
     Indication: HYPERTENSION

REACTIONS (3)
  - MALE ORGASMIC DISORDER [None]
  - MEDICATION ERROR [None]
  - RETROGRADE EJACULATION [None]
